FAERS Safety Report 9227044 (Version 2)
Quarter: 2013Q2

REPORT INFORMATION
  Report Type: Spontaneous
  Country: US (occurrence: None)
  Receive Date: 20130410
  Receipt Date: 20130415
  Transmission Date: 20140414
  Serious: Yes (Other)
  Sender: FDA-Public Use
  Company Number: JPI-P-030904

PATIENT
  Age: 69 Year
  Sex: Male

DRUGS (6)
  1. XYREM [Suspect]
     Indication: RESTLESS LEGS SYNDROME
     Dosage: 5 GM( 2.5 GM, 2 IN 1 D), ORAL
     Route: 048
     Dates: start: 20041015
  2. HUMAN GROWTH HORMONE [Concomitant]
  3. TESTOSTERONE [Concomitant]
  4. PROGESTERONE [Concomitant]
  5. VITAMIN D3 [Concomitant]
  6. PROSTAVAR [Concomitant]

REACTIONS (3)
  - Insomnia [None]
  - Tremor [None]
  - Insomnia [None]
